FAERS Safety Report 9681520 (Version 1)
Quarter: 2013Q4

REPORT INFORMATION
  Report Type: Spontaneous
  Country: ES (occurrence: None)
  Receive Date: 20131107
  Receipt Date: 20131107
  Transmission Date: 20140711
  Serious: Yes (Hospitalization)
  Sender: FDA-Public Use
  Company Number: INT_00323_2013

PATIENT
  Age: 64 Year
  Sex: Female

DRUGS (2)
  1. PACLITAXEL [Suspect]
     Indication: OVARIAN CANCER
     Dosage: 80 MG/M2 EVER TWO WEEKS
  2. GEMCITABINE (GEMCITABINE) [Suspect]
     Indication: OVARIAN CANCER
     Dosage: 1000 MG/M2 EVERY TWO WEEKS

REACTIONS (1)
  - Rhabdomyolysis [None]
